FAERS Safety Report 8367824-X (Version None)
Quarter: 2012Q2

REPORT INFORMATION
  Report Type: 
  Country: None (occurrence: None)
  Receive Date: 20120517
  Receipt Date: 20120511
  Transmission Date: 20120825
  Serious: Yes (Other)
  Sender: FDA-Public Use
  Company Number: PHEH2012US010020

PATIENT
  Sex: Male

DRUGS (2)
  1. DIOVAN [Suspect]
  2. EXFORGE [Suspect]

REACTIONS (1)
  - NERVOUS SYSTEM DISORDER [None]
